FAERS Safety Report 9073938 (Version 1)
Quarter: 2013Q1

REPORT INFORMATION
  Report Type: Report from Study
  Country: US (occurrence: US)
  Receive Date: 20130128
  Receipt Date: 20130128
  Transmission Date: 20140127
  Serious: No
  Sender: FDA-Public Use
  Company Number: US-ABBOTT-12P-163-0916591-00

PATIENT
  Sex: Female
  Weight: 95.34 kg

DRUGS (15)
  1. HUMIRA 40 MG/0.8 ML PEN [Suspect]
     Indication: RHEUMATOID ARTHRITIS
     Dates: start: 201111
  2. COQ10 [Concomitant]
     Indication: PRODUCT USED FOR UNKNOWN INDICATION
  3. ESTODIAL [Concomitant]
     Indication: HORMONE REPLACEMENT THERAPY
  4. FOLIC ACID [Concomitant]
     Indication: PRODUCT USED FOR UNKNOWN INDICATION
  5. LEVOTHYROID [Concomitant]
     Indication: HYPOTHYROIDISM
  6. LISINOPRIL [Concomitant]
     Indication: HYPERTENSION
  7. METHOTREXATE [Concomitant]
     Indication: PRODUCT USED FOR UNKNOWN INDICATION
  8. MVI [Concomitant]
     Indication: VITAMIN SUPPLEMENTATION
  9. NAPROSYN [Concomitant]
     Indication: PRODUCT USED FOR UNKNOWN INDICATION
  10. OMEGA 3 [Concomitant]
     Indication: PRODUCT USED FOR UNKNOWN INDICATION
  11. PREDNISONE [Concomitant]
     Indication: PRODUCT USED FOR UNKNOWN INDICATION
  12. VIT C [Concomitant]
     Indication: PRODUCT USED FOR UNKNOWN INDICATION
  13. VIT D [Concomitant]
     Indication: PRODUCT USED FOR UNKNOWN INDICATION
  14. VIT E [Concomitant]
     Indication: PRODUCT USED FOR UNKNOWN INDICATION
  15. ZOLOFT [Concomitant]
     Indication: DEPRESSION

REACTIONS (1)
  - Alopecia [Unknown]
